FAERS Safety Report 12115442 (Version 1)
Quarter: 2016Q1

REPORT INFORMATION
  Report Type: Spontaneous
  Country: US (occurrence: US)
  Receive Date: 20160225
  Receipt Date: 20160225
  Transmission Date: 20160526
  Serious: Yes (Death)
  Sender: FDA-Public Use
  Company Number: US-DSJP-DSU-2016-106945

PATIENT

DRUGS (2)
  1. BENICAR HCT [Suspect]
     Active Substance: HYDROCHLOROTHIAZIDE\OLMESARTAN MEDOXOMIL
     Indication: PRODUCT USED FOR UNKNOWN INDICATION
     Dosage: UNK
     Dates: start: 201005
  2. BENICAR [Suspect]
     Active Substance: OLMESARTAN MEDOXOMIL
     Indication: PRODUCT USED FOR UNKNOWN INDICATION
     Dosage: UNK
     Dates: start: 201005

REACTIONS (8)
  - Electrolyte imbalance [Fatal]
  - Diarrhoea [Fatal]
  - Hypomagnesaemia [Fatal]
  - Weight decreased [Fatal]
  - Acute kidney injury [Fatal]
  - Malnutrition [Fatal]
  - Hypophosphataemia [Fatal]
  - Hypokalaemia [Fatal]
